FAERS Safety Report 17488856 (Version 1)
Quarter: 2020Q1

REPORT INFORMATION
  Report Type: Report from Study
  Country: CA (occurrence: CA)
  Receive Date: 20200303
  Receipt Date: 20200303
  Transmission Date: 20200409
  Serious: Yes (Other)
  Sender: FDA-Public Use
  Company Number: CA-PFIZER INC-2020092454

PATIENT
  Age: 58 Year
  Sex: Female

DRUGS (4)
  1. TOPIRAMATE. [Suspect]
     Active Substance: TOPIRAMATE
     Indication: MIGRAINE
     Dosage: UNK
     Route: 065
  2. VALPROIC ACID. [Suspect]
     Active Substance: VALPROIC ACID
     Indication: MIGRAINE
     Dosage: UNK
     Route: 065
  3. VERAPAMIL HCL [Suspect]
     Active Substance: VERAPAMIL HYDROCHLORIDE
     Indication: MIGRAINE
     Dosage: UNK
     Route: 065
  4. AMITRIPTYLINE [Concomitant]
     Active Substance: AMITRIPTYLINE
     Dosage: UNK
     Route: 065

REACTIONS (10)
  - Drug ineffective for unapproved indication [Unknown]
  - Drug intolerance [Unknown]
  - Fibromyalgia [Unknown]
  - Vomiting [Unknown]
  - Off label use [Unknown]
  - Seizure [Unknown]
  - Thinking abnormal [Unknown]
  - Headache [Unknown]
  - Aphasia [Unknown]
  - Rash [Unknown]
